FAERS Safety Report 20955703 (Version 1)
Quarter: 2022Q2

REPORT INFORMATION
  Report Type: Spontaneous
  Country: US (occurrence: US)
  Receive Date: 20220614
  Receipt Date: 20220614
  Transmission Date: 20220720
  Serious: No
  Sender: FDA-Public Use
  Company Number: US-PFIZER INC-202200828394

PATIENT
  Age: 59 Year
  Sex: Female

DRUGS (1)
  1. XELJANZ XR [Suspect]
     Active Substance: TOFACITINIB CITRATE
     Indication: Rheumatoid arthritis
     Dosage: 11 MG, 1X/DAY
     Route: 048
     Dates: start: 20211117

REACTIONS (6)
  - COVID-19 [Unknown]
  - Product dose omission issue [Unknown]
  - Arthralgia [Unknown]
  - Burning sensation [Unknown]
  - Nerve injury [Unknown]
  - Poor peripheral circulation [Unknown]

NARRATIVE: CASE EVENT DATE: 20220401
